FAERS Safety Report 13804453 (Version 1)
Quarter: 2017Q3

REPORT INFORMATION
  Report Type: Spontaneous
  Country: MX (occurrence: MX)
  Receive Date: 20170728
  Receipt Date: 20170728
  Transmission Date: 20171127
  Serious: Yes (Death, Other)
  Sender: FDA-Public Use
  Company Number: MX-BRISTOL-MYERS SQUIBB COMPANY-BMS-2017-064774

PATIENT
  Sex: Female

DRUGS (6)
  1. ORENCIA [Suspect]
     Active Substance: ABATACEPT
     Indication: RHEUMATOID ARTHRITIS
     Dosage: 125 MG, UNK
     Route: 058
     Dates: start: 20160323
  2. PREDNISONE. [Concomitant]
     Active Substance: PREDNISONE
     Indication: RHEUMATOID ARTHRITIS
     Dosage: 1 TAB, QD
     Route: 065
     Dates: start: 20170323, end: 20170711
  3. ESOMEPRAZOLE [Concomitant]
     Active Substance: ESOMEPRAZOLE
     Indication: GASTROOESOPHAGEAL REFLUX DISEASE
     Dosage: 1 DF, QD
     Route: 048
     Dates: start: 20170323, end: 20170711
  4. ALUMINIUM AND MAGNESIUM [Concomitant]
     Indication: GASTROINTESTINAL DISORDER
     Dosage: 10 ML, Q12H
     Route: 048
     Dates: start: 20170323, end: 20170711
  5. SODIC DICLOFENAC [Concomitant]
     Indication: PAIN
     Dosage: 1 G, Q12H
     Route: 003
     Dates: start: 20170323, end: 20170711
  6. ETORICOXIB [Concomitant]
     Active Substance: ETORICOXIB
     Indication: PAIN
     Dosage: 1 TAB, QD
     Route: 048
     Dates: start: 20170323, end: 20170711

REACTIONS (6)
  - Pneumonia [Fatal]
  - Pancytopenia [Fatal]
  - Influenza [Unknown]
  - Septic shock [Unknown]
  - Metabolic acidosis [Unknown]
  - Respiratory failure [Fatal]
